FAERS Safety Report 10761137 (Version 4)
Quarter: 2015Q2

REPORT INFORMATION
  Report Type: Spontaneous
  Country: JP (occurrence: JP)
  Receive Date: 20150204
  Receipt Date: 20150604
  Transmission Date: 20150821
  Serious: Yes (Other)
  Sender: FDA-Public Use
  Company Number: JP-AMGEN-JPNSP2015008295

PATIENT
  Age: 81 Year
  Sex: Female
  Weight: 45 kg

DRUGS (5)
  1. PRALIA [Suspect]
     Active Substance: DENOSUMAB
     Indication: OSTEOPOROSIS
     Dosage: 60 MG, UNK
     Route: 058
     Dates: start: 201310, end: 20141029
  2. ONEALFA [Concomitant]
     Active Substance: ALFACALCIDOL
     Indication: OSTEOPOROSIS
     Dosage: 0.5 MUG, BID
     Route: 048
     Dates: start: 201301
  3. BONALON [Concomitant]
     Active Substance: ALENDRONATE SODIUM
     Indication: SPINAL COMPRESSION FRACTURE
     Dosage: 35 MG, QD
     Route: 048
     Dates: start: 2009, end: 2014
  4. ALFAROL [Concomitant]
     Active Substance: ALFACALCIDOL
     Indication: SPINAL COMPRESSION FRACTURE
     Dosage: 0.25 MG, TID
     Route: 048
     Dates: start: 2009, end: 2014
  5. DENOTAS [Concomitant]
     Active Substance: CALCIUM CARBONATE\CHOLECALCIFEROL\MAGNESIUM CARBONATE
     Indication: OSTEOPOROSIS
     Dosage: 2 DF, QD
     Route: 048
     Dates: start: 201310, end: 201404

REACTIONS (1)
  - Osteonecrosis of jaw [Unknown]

NARRATIVE: CASE EVENT DATE: 20141203
